FAERS Safety Report 6723537-9 (Version None)
Quarter: 2010Q2

REPORT INFORMATION
  Report Type: 
  Country: None (occurrence: None)
  Receive Date: 20100513
  Receipt Date: 20100416
  Transmission Date: 20101027
  Serious: No
  Sender: FDA-Public Use
  Company Number: US-BAYER-201019595NA

PATIENT
  Age: 42 Year
  Sex: Female
  Weight: 75 kg

DRUGS (2)
  1. ULTRAVIST 150 [Suspect]
     Indication: COMPUTERISED TOMOGRAM ABDOMEN
     Dosage: TOTAL DAILY DOSE: 112 ML  UNIT DOSE: 200 ML
     Route: 042
     Dates: start: 20100409, end: 20100409
  2. VOLUVEN [Concomitant]
     Route: 048
     Dates: start: 20100409, end: 20100409

REACTIONS (2)
  - PRURITUS [None]
  - RASH [None]
